FAERS Safety Report 7785642-8 (Version None)
Quarter: 2011Q3

REPORT INFORMATION
  Report Type: 
  Country: None (occurrence: None)
  Receive Date: 20110929
  Receipt Date: 20110929
  Transmission Date: 20111222
  Serious: No
  Sender: FDA-Public Use
  Company Number: None

PATIENT
  Sex: Female
  Weight: 44.452 kg

DRUGS (1)
  1. ACTONEL [Suspect]
     Indication: OSTEOPOROSIS
     Dosage: TABLET 150MG
     Route: 048
     Dates: start: 20080101, end: 20110918

REACTIONS (10)
  - NAUSEA [None]
  - DIZZINESS [None]
  - MUSCLE SPASMS [None]
  - MYALGIA [None]
  - PAIN IN EXTREMITY [None]
  - ARTHRALGIA [None]
  - MUSCULOSKELETAL STIFFNESS [None]
  - DISCOMFORT [None]
  - MUSCULAR WEAKNESS [None]
  - JOINT RANGE OF MOTION DECREASED [None]
